FAERS Safety Report 20967972 (Version 1)
Quarter: 2022Q2

REPORT INFORMATION
  Report Type: Spontaneous
  Country: ES (occurrence: ES)
  Receive Date: 20220616
  Receipt Date: 20220616
  Transmission Date: 20220721
  Serious: Yes (Hospitalization)
  Sender: FDA-Public Use
  Company Number: None

PATIENT
  Age: 79 Year
  Sex: Female

DRUGS (7)
  1. CAPECITABINE [Suspect]
     Active Substance: CAPECITABINE
     Indication: Colon cancer
     Dosage: 4000 MILLIGRAM DAILY; 2000.0 MG C/12 H , CAPECITABINA (1224A)
     Route: 048
     Dates: start: 20210202, end: 20210215
  2. LORAZEPAM [Concomitant]
     Active Substance: LORAZEPAM
     Indication: Anxiety
     Dosage: 2 MILLIGRAM DAILY; 2.0 MG C/24 H NOC , 50 TABLETS , LORAZEPAM NORMON 1 MG COMPRIMIDOS EFG , STRENGTH
     Route: 048
     Dates: start: 20080524
  3. PARACETAMOL KERN PHARMA [Concomitant]
     Indication: Osteoarthritis
     Dosage: 1300 MILLIGRAM DAILY; 650.0 MG C/12 H , PARACETAMOL KERN PHARMA 650 MG COMPRIMIDOS EFG , STRENGTH :
     Route: 048
     Dates: start: 20190213
  4. CALCIUM CARBONATE\CHOLECALCIFEROL [Concomitant]
     Active Substance: CALCIUM CARBONATE\CHOLECALCIFEROL
     Indication: Osteoporosis
     Dosage: 1.0 COMP D-CE , STRENGTH : 1,500 MG/400 IU  , 60 TABLETS
     Route: 048
     Dates: start: 20150715
  5. OMEPRAZOLE MAGNESIUM [Concomitant]
     Active Substance: OMEPRAZOLE MAGNESIUM
     Indication: Dyspepsia
     Dosage: 40 MILLIGRAM DAILY; 20.0 MG C/12 H , OMEPRAZOL PENSA 20 MG CAPSULAS DURAS GASTRORRESISTENTES EFG , S
     Route: 048
     Dates: start: 20180319
  6. AMLODIPINE BESYLATE\HYDROCHLOROTHIAZIDE\OLMESARTAN MEDOXOMIL [Concomitant]
     Active Substance: AMLODIPINE BESYLATE\HYDROCHLOROTHIAZIDE\OLMESARTAN MEDOXOMIL
     Indication: Essential hypertension
     Dosage: 1 DOSAGE FORMS DAILY; 1.0 COMP C/24 H , STRENGTH : 40 MG/10 MG/12.5 MG , 28 TABLETS
     Route: 048
     Dates: start: 20200924
  7. SIMVASTATIN [Concomitant]
     Active Substance: SIMVASTATIN
     Indication: Hypercholesterolaemia
     Dosage: 10.0 MG CE , STRENGTH : 10 MG , SIMVASTATINA NORMON 10 MG COMPRIMIDOS RECUBIERTOS CON  PELICULA EFG
     Route: 048
     Dates: start: 20100713

REACTIONS (4)
  - Nausea [Recovered/Resolved]
  - Vomiting [Recovered/Resolved]
  - Diarrhoea [Recovered/Resolved]
  - Gastrointestinal toxicity [Recovered/Resolved]

NARRATIVE: CASE EVENT DATE: 20210219
